FAERS Safety Report 6883298-X (Version None)
Quarter: 2010Q3

REPORT INFORMATION
  Report Type: 
  Country: None (occurrence: None)
  Receive Date: 20100727
  Receipt Date: 20071004
  Transmission Date: 20110219
  Serious: Yes (Hospitalization)
  Sender: FDA-Public Use
  Company Number: US-PFIZER INC-2006116770

PATIENT
  Sex: Female
  Weight: 108.9 kg

DRUGS (2)
  1. CELEBREX [Suspect]
     Indication: ARTHRALGIA
     Dates: start: 20010101, end: 20010201
  2. VIOXX [Suspect]
     Indication: ARTHRITIS
     Dosage: 2-3 TIMES PER DAY
     Dates: start: 20001201, end: 20010101

REACTIONS (1)
  - MYOCARDIAL INFARCTION [None]
